FAERS Safety Report 8298003-2 (Version None)
Quarter: 2012Q2

REPORT INFORMATION
  Report Type: 
  Country: None (occurrence: None)
  Receive Date: 20120419
  Receipt Date: 20120411
  Transmission Date: 20120825
  Serious: Yes (Other)
  Sender: FDA-Public Use
  Company Number: ES-BAYER-2012-036254

PATIENT
  Age: 45 Year
  Sex: Female

DRUGS (1)
  1. MIRENA [Suspect]
     Dosage: UNK
     Dates: start: 20090501

REACTIONS (10)
  - WEIGHT DECREASED [None]
  - ACNE [None]
  - VISUAL FIELD DEFECT [None]
  - DEPRESSION [None]
  - ALOPECIA [None]
  - LIBIDO DECREASED [None]
  - AFFECT LABILITY [None]
  - UNEVALUABLE EVENT [None]
  - HYPOTHYROIDISM [None]
  - EMBOLISM [None]
